FAERS Safety Report 7203376-5 (Version None)
Quarter: 2010Q4

REPORT INFORMATION
  Report Type: 
  Country: None (occurrence: None)
  Receive Date: 20101230
  Receipt Date: 20101217
  Transmission Date: 20110411
  Serious: Yes (Hospitalization)
  Sender: FDA-Public Use
  Company Number: US-ROCHE-748494

PATIENT
  Sex: Female
  Weight: 68 kg

DRUGS (14)
  1. BEVACIZUMAB [Suspect]
     Route: 042
     Dates: start: 20101125
  2. CAPECITABINE [Suspect]
     Dosage: FREQUENCY: DAYS 1-14 (21 CYCLE)
     Route: 048
     Dates: start: 20100525
  3. CAPECITABINE [Suspect]
     Route: 048
  4. CARBOPLATIN [Suspect]
     Dosage: DOSE: AUC 6
     Route: 042
     Dates: start: 20101125
  5. ZOFRAN [Concomitant]
     Route: 042
  6. COMPAZINE [Concomitant]
     Dates: start: 20101124
  7. COMPAZINE [Concomitant]
  8. ATIVAN [Concomitant]
     Dosage: PRN
     Route: 048
     Dates: start: 20101124
  9. BENICAR [Concomitant]
     Route: 048
  10. CYTOMEL [Concomitant]
     Route: 048
  11. CYTOMEL [Concomitant]
     Dosage: DISP-30, R-4
     Route: 048
     Dates: start: 20101212
  12. VIVELLE [Concomitant]
     Dosage: 0.1 MG/24 HOURS
  13. SYNTHROID [Concomitant]
     Route: 048
  14. PRILOSEC [Concomitant]
     Dosage: CDPR
     Route: 048

REACTIONS (7)
  - ANXIETY [None]
  - CHILLS [None]
  - DIARRHOEA [None]
  - NAUSEA [None]
  - PYREXIA [None]
  - REGURGITATION [None]
  - WEIGHT DECREASED [None]
